FAERS Safety Report 4452259-2 (Version None)
Quarter: 2004Q3

REPORT INFORMATION
  Report Type: 
  Country: None (occurrence: None)
  Receive Date: 20040917
  Receipt Date: 20040428
  Transmission Date: 20050211
  Serious: Yes (Hospitalization)
  Sender: FDA-Public Use
  Company Number: US-AMGEN-KDL071208

PATIENT
  Sex: Male

DRUGS (7)
  1. AMG 099073 [Suspect]
     Indication: HYPERPARATHYROIDISM SECONDARY
     Route: 048
     Dates: start: 20030618, end: 20040405
  2. SILVADENE [Suspect]
  3. RENAGEL [Concomitant]
  4. PHOSLO [Concomitant]
  5. ROCALTROL [Concomitant]
  6. NEPHRO-CAPS [Concomitant]
  7. COUMADIN [Concomitant]

REACTIONS (8)
  - BLOOD CALCIUM DECREASED [None]
  - CALCIPHYLAXIS [None]
  - DIALYSIS [None]
  - HYPERPARATHYROIDISM [None]
  - PAIN OF SKIN [None]
  - PALPITATIONS [None]
  - POST PROCEDURAL COMPLICATION [None]
  - SKIN ULCER [None]
